FAERS Safety Report 10460257 (Version 1)
Quarter: 2014Q3

REPORT INFORMATION
  Report Type: Spontaneous
  Country: JP (occurrence: JP)
  Receive Date: 20140917
  Receipt Date: 20140917
  Transmission Date: 20150326
  Serious: Yes (Hospitalization, Other)
  Sender: FDA-Public Use
  Company Number: JP-BAUSCH-BL-2014-005492

PATIENT
  Age: 89 Year
  Sex: Male
  Weight: 46 kg

DRUGS (2)
  1. BESELNA CREAM 5% [Suspect]
     Active Substance: IMIQUIMOD
     Indication: EXTRAMAMMARY PAGET^S DISEASE
     Route: 061
     Dates: start: 20140825, end: 20140827
  2. FERROMIA [Concomitant]
     Active Substance: FERROUS CITRATE
     Indication: ANAEMIA
     Route: 048
     Dates: start: 201407

REACTIONS (2)
  - Off label use [Recovered/Resolved]
  - Pyrexia [Recovered/Resolved]

NARRATIVE: CASE EVENT DATE: 20140825
